FAERS Safety Report 4724470-4 (Version None)
Quarter: 2005Q3

REPORT INFORMATION
  Report Type: 
  Country: None (occurrence: None)
  Receive Date: 20050721
  Receipt Date: 20050708
  Transmission Date: 20060218
  Serious: Yes (Other)
  Sender: FDA-Public Use
  Company Number: SUS1-2005-00355

PATIENT
  Age: 9 Year
  Sex: Male

DRUGS (7)
  1. PENTASA [Suspect]
     Indication: COLITIS ULCERATIVE
     Dosage: SEE  IMAGE
     Route: 048
     Dates: start: 20041228, end: 20050112
  2. PENTASA [Suspect]
     Indication: COLITIS ULCERATIVE
     Dosage: SEE  IMAGE
     Route: 048
     Dates: start: 20050113, end: 20050227
  3. PENTASA [Suspect]
     Indication: COLITIS ULCERATIVE
     Dosage: SEE  IMAGE
     Route: 048
     Dates: start: 20050228, end: 20050414
  4. PREDNISOONE SODIUM SUCCINATE (PREDNISOLONE SODIUM SUCCINATE) [Concomitant]
  5. PREDNISONE [Concomitant]
  6. ETHYL ICOSAPENTATE (ETHYL ICOSAPENTATE) [Concomitant]
  7. FAMOTIDINE [Concomitant]

REACTIONS (4)
  - BLOOD CALCIUM INCREASED [None]
  - COLITIS ULCERATIVE [None]
  - NEPHRITIS INTERSTITIAL [None]
  - NEPHROGENIC DIABETES INSIPIDUS [None]
